FAERS Safety Report 9017318 (Version 1)
Quarter: 2013Q1

REPORT INFORMATION
  Report Type: Spontaneous
  Country: US (occurrence: US)
  Receive Date: 20130117
  Receipt Date: 20130117
  Transmission Date: 20140127
  Serious: No
  Sender: FDA-Public Use
  Company Number: US-PFIZER INC-2013016992

PATIENT
  Age: 4 Year
  Sex: Female

DRUGS (4)
  1. CHILDRENS ADVIL [Suspect]
     Indication: PYREXIA
     Dosage: UNK
  2. CHILDRENS ADVIL [Interacting]
     Indication: HEADACHE
  3. CHILDREN^S TYLENOL [Interacting]
     Indication: PYREXIA
     Dosage: UNK
  4. CHILDREN^S TYLENOL [Interacting]
     Indication: HEADACHE

REACTIONS (3)
  - Drug interaction [Unknown]
  - Eye swelling [Unknown]
  - Eye pruritus [Unknown]
